FAERS Safety Report 4750570-9 (Version None)
Quarter: 2005Q3

REPORT INFORMATION
  Report Type: 
  Country: None (occurrence: None)
  Receive Date: 20050823
  Receipt Date: 20050811
  Transmission Date: 20060218
  Serious: Yes (Death, Hospitalization)
  Sender: FDA-Public Use
  Company Number: FR-SANOFI-SYNTHELABO-A02200502172

PATIENT
  Age: 85 Year
  Sex: Male

DRUGS (6)
  1. XATRAL [Suspect]
     Indication: DRUG USE FOR UNKNOWN INDICATION
     Dosage: UNK
     Route: 048
     Dates: end: 20041126
  2. ZOCOR [Suspect]
     Dosage: UNK
     Route: 048
     Dates: end: 20041126
  3. PROSCAR [Suspect]
     Indication: DRUG USE FOR UNKNOWN INDICATION
     Dosage: UNK
     Route: 048
     Dates: end: 20041126
  4. ZOMETA [Suspect]
     Indication: PROSTATE CANCER METASTATIC
     Route: 042
     Dates: start: 20041015, end: 20041015
  5. ZOMETA [Suspect]
     Route: 042
     Dates: start: 20041110, end: 20041110
  6. ASPIRIN [Concomitant]
     Dosage: UNK
     Route: 048

REACTIONS (5)
  - CYTOLYTIC HEPATITIS [None]
  - DISSEMINATED INTRAVASCULAR COAGULATION [None]
  - MULTI-ORGAN FAILURE [None]
  - NEUTROPENIA [None]
  - RENAL FAILURE ACUTE [None]
